APPROVED DRUG PRODUCT: PACLITAXEL
Active Ingredient: PACLITAXEL
Strength: 6MG/ML
Dosage Form/Route: INJECTABLE;INJECTION
Application: A078167 | Product #001
Applicant: SANDOZ INC
Approved: Dec 26, 2007 | RLD: No | RS: No | Type: DISCN